FAERS Safety Report 4738572-X (Version None)
Quarter: 2005Q3

REPORT INFORMATION
  Report Type: 
  Country: None (occurrence: None)
  Receive Date: 20050808
  Receipt Date: 20050808
  Transmission Date: 20060218
  Serious: Yes (Hospitalization, Other)
  Sender: FDA-Public Use
  Company Number: None

PATIENT
  Sex: Female
  Weight: 88.4 kg

DRUGS (2)
  1. GEMCITABINE [Suspect]
     Indication: PANCREATIC CARCINOMA
     Dosage: SEE IMAGE
     Route: 042
     Dates: start: 20050705, end: 20050711
  2. GEMCITABINE [Suspect]
     Dosage: SEE IMAGE
     Route: 042
     Dates: start: 20050705, end: 20050711

REACTIONS (8)
  - ABDOMINAL PAIN [None]
  - CELLULITIS [None]
  - CHILLS [None]
  - MALAISE [None]
  - OEDEMA PERIPHERAL [None]
  - ORBITAL OEDEMA [None]
  - PYREXIA [None]
  - TREMOR [None]
